FAERS Safety Report 8608752 (Version 3)
Quarter: 2012Q4

REPORT INFORMATION
  Report Type: 
  Country: US (occurrence: US)
  Receive Date: 20120611
  Receipt Date: 20120830
  Transmission Date: 20130627
  Serious: Yes (Death, Hospitalization)
  Sender: FDA-Public Use
  Company Number: US-ELI_LILLY_AND_COMPANY-US201206001384

PATIENT
  Sex: Male
  Weight: 73.92 kg

DRUGS (5)
  1. ALIMTA [Suspect]
     Indication: NON-SMALL CELL LUNG CANCER
     Dosage: 716 mg, UNK
     Route: 042
     Dates: start: 20110709, end: 20110709
  2. ALIMTA [Suspect]
     Dosage: 375 mg/m2, every 3 weeks
     Route: 042
     Dates: start: 20110709
  3. VITAMIN B12 [Concomitant]
     Dosage: 1000 ug, weekly (1/W)
     Route: 058
     Dates: start: 20110621
  4. FOLIC ACID [Concomitant]
     Dosage: 2 mg, qd
     Route: 048
     Dates: start: 20110621
  5. DEXAMETHASONE [Concomitant]
     Dosage: 20 mg, qd
     Route: 042
     Dates: start: 20110709

REACTIONS (4)
  - Respiratory failure [Fatal]
  - Neoplasm progression [Fatal]
  - Pneumonia [Fatal]
  - Pancytopenia [Unknown]
